FAERS Safety Report 14376796 (Version 1)
Quarter: 2018Q1

REPORT INFORMATION
  Report Type: Spontaneous
  Country: US (occurrence: US)
  Receive Date: 20180111
  Receipt Date: 20180111
  Transmission Date: 20180509
  Serious: No
  Sender: FDA-Public Use
  Company Number: US-TARO-2016TAR00987

PATIENT
  Age: 70 Year
  Sex: Male
  Weight: 101.59 kg

DRUGS (5)
  1. CLOBETASOL PROPIONATE TOPICAL SOLUTION USP 0.05% [Suspect]
     Active Substance: CLOBETASOL PROPIONATE
     Indication: SKIN INFECTION
     Dosage: 0.05 %, TWICE
     Route: 061
     Dates: start: 20161121, end: 20161121
  2. UNSPECIFIED BLOOD THINNERS [Concomitant]
  3. AMIODARONE [Concomitant]
     Active Substance: AMIODARONE
  4. CALCIUM [Concomitant]
     Active Substance: CALCIUM
  5. UNSPECIFIED OTHER MEDICATIONS [Concomitant]
     Active Substance: UNSPECIFIED INGREDIENT

REACTIONS (5)
  - Pruritus [Not Recovered/Not Resolved]
  - Malaise [Not Recovered/Not Resolved]
  - Paraesthesia [Not Recovered/Not Resolved]
  - Rash pustular [Not Recovered/Not Resolved]
  - Folliculitis [Not Recovered/Not Resolved]

NARRATIVE: CASE EVENT DATE: 20161121
